FAERS Safety Report 7107830-6 (Version None)
Quarter: 2010Q4

REPORT INFORMATION
  Report Type: 
  Country: None (occurrence: None)
  Receive Date: 20101117
  Receipt Date: 20101101
  Transmission Date: 20110411
  Serious: Yes (Hospitalization)
  Sender: FDA-Public Use
  Company Number: US-BAYER-201034905NA

PATIENT
  Sex: Female
  Weight: 79 kg

DRUGS (6)
  1. YAZ [Suspect]
     Indication: MENSTRUAL DISORDER
     Route: 048
     Dates: start: 20080501, end: 20080801
  2. YAZ [Suspect]
     Route: 048
     Dates: start: 20090301
  3. YAZ [Suspect]
     Route: 048
     Dates: start: 20090801, end: 20100101
  4. YASMIN [Suspect]
     Indication: PRODUCT USED FOR UNKNOWN INDICATION
     Route: 048
  5. PROMETHAZINE [Concomitant]
  6. METRONIDAZOLE [Concomitant]

REACTIONS (3)
  - ABDOMINAL PAIN UPPER [None]
  - CHOLECYSTITIS CHRONIC [None]
  - PROCEDURAL PAIN [None]
